FAERS Safety Report 10204016 (Version 1)
Quarter: 2014Q2

REPORT INFORMATION
  Report Type: Spontaneous
  Country: FR (occurrence: FR)
  Receive Date: 20140529
  Receipt Date: 20140529
  Transmission Date: 20141212
  Serious: Yes (Life-Threatening)
  Sender: FDA-Public Use
  Company Number: FR-MALLINCKRODT-T201402299

PATIENT
  Age: 82 Year
  Sex: Female

DRUGS (7)
  1. OFIRMEV [Suspect]
     Indication: ANALGESIC THERAPY
     Dosage: 3 GRAM DAILY
     Route: 042
     Dates: start: 20140317, end: 20140321
  2. TEMESTA [Suspect]
     Indication: ANXIETY
     Dosage: 1 MG FOR 4 DAYS
     Route: 048
     Dates: start: 20140318, end: 20140321
  3. HEPARIN SODIUM [Suspect]
     Indication: ATRIAL FIBRILLATION
     Dosage: 12000 IU Q 12 HOURS FOR 4 DAYS
     Route: 042
     Dates: start: 20140317, end: 20140320
  4. HEPARIN SODIUM [Suspect]
     Dosage: UNK
  5. PREVISCAN [Concomitant]
     Dosage: UNK
     Dates: start: 20140318
  6. MORPHINE [Concomitant]
     Dosage: UNK
     Dates: start: 20140318
  7. BISOPROLOL [Concomitant]
     Dosage: UNK
     Dates: start: 20140319

REACTIONS (1)
  - Hepatocellular injury [Recovering/Resolving]
